FAERS Safety Report 21790709 (Version 1)
Quarter: 2022Q4

REPORT INFORMATION
  Report Type: Report from Study
  Country: US (occurrence: US)
  Receive Date: 20221228
  Receipt Date: 20221228
  Transmission Date: 20230113
  Serious: No
  Sender: FDA-Public Use
  Company Number: US-CLOVIS ONCOLOGY-CLO-2022-001087

PATIENT
  Sex: Female

DRUGS (3)
  1. RUBRACA [Suspect]
     Active Substance: RUCAPARIB CAMSYLATE
     Indication: Ovarian cancer
     Dosage: 600 MILLIGRAM, BID
     Route: 048
     Dates: start: 202208, end: 20220926
  2. RUBRACA [Suspect]
     Active Substance: RUCAPARIB CAMSYLATE
     Dosage: 600 MG IN THE MORNING 300 MG IN THE EVENING
     Route: 048
     Dates: start: 20220926
  3. RUBRACA [Suspect]
     Active Substance: RUCAPARIB CAMSYLATE
     Dosage: 500 MILLIGRAM, BID
     Route: 048
     Dates: start: 20221031

REACTIONS (9)
  - Arthralgia [Unknown]
  - Pain [Unknown]
  - Increased tendency to bruise [Unknown]
  - Gait disturbance [Unknown]
  - Hair texture abnormal [Unknown]
  - Abdominal pain [Unknown]
  - White blood cell count decreased [Unknown]
  - Neutrophil count decreased [Recovering/Resolving]
  - Dysgeusia [Unknown]

NARRATIVE: CASE EVENT DATE: 20220101
